FAERS Safety Report 8537307-2 (Version None)
Quarter: 2012Q3

REPORT INFORMATION
  Report Type: 
  Country: None (occurrence: None)
  Receive Date: 20120725
  Receipt Date: 20120719
  Transmission Date: 20120928
  Serious: Yes (Hospitalization, Other)
  Sender: FDA-Public Use
  Company Number: US-PFIZER INC-2004066918

PATIENT
  Sex: Male
  Weight: 91.156 kg

DRUGS (5)
  1. DILANTIN [Suspect]
     Indication: CONVULSION
     Dosage: UNK, 4X/DAY
     Route: 048
  2. DILANTIN [Suspect]
     Dosage: 100 MG, 1X/DAY
     Dates: start: 20010101, end: 20010101
  3. DILANTIN [Suspect]
     Dosage: 100 MG, 3X/DAY
     Dates: start: 19650101
  4. CELEBREX [Suspect]
     Dosage: UNK
     Route: 065
  5. DILANTIN [Suspect]
     Dosage: UNK
     Dates: end: 20030101

REACTIONS (22)
  - BLOOD CHOLESTEROL ABNORMAL [None]
  - DRUG LEVEL INCREASED [None]
  - DRUG LEVEL DECREASED [None]
  - PROSTATECTOMY [None]
  - PAIN [None]
  - PNEUMONIA [None]
  - LUPUS-LIKE SYNDROME [None]
  - RHEUMATOID ARTHRITIS [None]
  - CHOLECYSTECTOMY [None]
  - EARLY RETIREMENT [None]
  - MYOCARDIAL INFARCTION [None]
  - CEREBROVASCULAR ACCIDENT [None]
  - CONVULSION [None]
  - WRIST FRACTURE [None]
  - THYROID DISORDER [None]
  - GAIT DISTURBANCE [None]
  - DRUG INEFFECTIVE [None]
  - CARDIAC MURMUR [None]
  - INTERVERTEBRAL DISC PROTRUSION [None]
  - ARTHRALGIA [None]
  - RASH [None]
  - AORTIC VALVE DISEASE [None]
